APPROVED DRUG PRODUCT: NAFTIFINE HYDROCHLORIDE
Active Ingredient: NAFTIFINE HYDROCHLORIDE
Strength: 2%
Dosage Form/Route: GEL;TOPICAL
Application: A208201 | Product #001 | TE Code: AB
Applicant: SUN PHARMA CANADA INC
Approved: Apr 10, 2019 | RLD: No | RS: No | Type: RX